FAERS Safety Report 15849382 (Version 1)
Quarter: 2019Q1

REPORT INFORMATION
  Report Type: Report from Study
  Country: BR (occurrence: BR)
  Receive Date: 20190121
  Receipt Date: 20190121
  Transmission Date: 20190417
  Serious: Yes (Death, Hospitalization, Other)
  Sender: FDA-Public Use
  Company Number: BR-SA-2019SA005026

PATIENT
  Age: 62 Year
  Sex: Male
  Weight: 110 kg

DRUGS (5)
  1. STANGLIT [Concomitant]
     Active Substance: PIOGLITAZONE HYDROCHLORIDE
     Indication: DIABETES MELLITUS
     Dosage: UNK
  2. INSULIN GLARGINE [Suspect]
     Active Substance: INSULIN GLARGINE
     Indication: DIABETES MELLITUS
     Dosage: 34 IU
     Route: 058
  3. FORXIGA [Concomitant]
     Active Substance: DAPAGLIFLOZIN
     Indication: DIABETES MELLITUS
     Dosage: UNK
  4. RENITEC [ENALAPRIL MALEATE] [Concomitant]
     Indication: HYPERTENSION
     Dosage: UNK
  5. GLIFAGE [Concomitant]
     Active Substance: METFORMIN HYDROCHLORIDE
     Indication: DIABETES MELLITUS
     Dosage: UNK

REACTIONS (2)
  - Cardiac operation [Fatal]
  - Cardiac failure [Unknown]

NARRATIVE: CASE EVENT DATE: 20181212
